FAERS Safety Report 14904136 (Version 1)
Quarter: 2018Q2

REPORT INFORMATION
  Report Type: Spontaneous
  Country: RO (occurrence: RO)
  Receive Date: 20180516
  Receipt Date: 20180516
  Transmission Date: 20180711
  Serious: Yes (Hospitalization)
  Sender: FDA-Public Use
  Company Number: RO-TEVA-2018-RO-892886

PATIENT
  Age: 59 Year
  Sex: Female

DRUGS (1)
  1. COPAXONE [Suspect]
     Active Substance: GLATIRAMER ACETATE
     Indication: MULTIPLE SCLEROSIS
     Dosage: 3  ADMINISTRATIONS/WEEK
     Route: 058
     Dates: start: 20180304, end: 20180315

REACTIONS (3)
  - Administration site erythema [Recovered/Resolved]
  - Administration site pain [Recovered/Resolved]
  - Urticaria [Not Recovered/Not Resolved]

NARRATIVE: CASE EVENT DATE: 20180308
